FAERS Safety Report 8885321 (Version 1)
Quarter: 2012Q4

REPORT INFORMATION
  Report Type: Report from Study
  Country: NL (occurrence: NL)
  Receive Date: 20121101
  Receipt Date: 20121101
  Transmission Date: 20130627
  Serious: Yes (Hospitalization)
  Sender: FDA-Public Use
  Company Number: NL-ROCHE-1143371

PATIENT
  Age: 53 Year
  Sex: Female

DRUGS (5)
  1. CAPECITABINE [Suspect]
     Indication: GASTRIC CANCER
     Dosage: Date of last treatment: 30/Oct/2012
     Route: 048
     Dates: start: 20120919
  2. EPIRUBICIN [Suspect]
     Indication: GASTRIC CANCER
     Dosage: Date of last treatment: 19/Sep/2012
     Route: 042
     Dates: start: 20120919
  3. CISPLATIN [Suspect]
     Indication: GASTRIC CANCER
     Dosage: Date of last treatment: 19/Sep/2012
     Route: 042
     Dates: start: 20120919
  4. DEXIUM [Concomitant]
  5. METOCLOPRAMIDE [Concomitant]
     Route: 065
     Dates: start: 20121005

REACTIONS (2)
  - Ileus [Recovered/Resolved with Sequelae]
  - Mucosal inflammation [Recovered/Resolved with Sequelae]
